FAERS Safety Report 7654296-3 (Version None)
Quarter: 2011Q3

REPORT INFORMATION
  Report Type: 
  Country: None (occurrence: None)
  Receive Date: 20110803
  Receipt Date: 20110727
  Transmission Date: 20111222
  Serious: Yes (Hospitalization, Other)
  Sender: FDA-Public Use
  Company Number: FR-CEPHALON-2011004044

PATIENT
  Sex: Male

DRUGS (4)
  1. SOLU-MEDROL [Concomitant]
     Dates: start: 20110516, end: 20110517
  2. BENDAMUSTINE HCL [Suspect]
     Indication: CHRONIC LYMPHOCYTIC LEUKAEMIA
     Route: 042
     Dates: start: 20110517, end: 20110518
  3. MABTHERA [Suspect]
     Route: 042
     Dates: start: 20110516, end: 20110516
  4. MABTHERA [Suspect]
     Route: 042
     Dates: start: 20110517, end: 20110517

REACTIONS (5)
  - AORTIC VALVE DISEASE [None]
  - STAPHYLOCOCCAL INFECTION [None]
  - BONE MARROW FAILURE [None]
  - HAEMORRHAGIC DIATHESIS [None]
  - BRONCHOPULMONARY ASPERGILLOSIS [None]
